FAERS Safety Report 10066845 (Version 1)
Quarter: 2014Q2

REPORT INFORMATION
  Report Type: Spontaneous
  Country: IT (occurrence: IT)
  Receive Date: 20140408
  Receipt Date: 20140408
  Transmission Date: 20141212
  Serious: Yes (Other)
  Sender: FDA-Public Use
  Company Number: IT-MYLANLABS-2014S1007571

PATIENT
  Age: 48 Year
  Sex: Male
  Weight: 80 kg

DRUGS (1)
  1. RISPERIDONE [Suspect]
     Indication: MENTAL DISORDER
     Dosage: 2 MG DAILY
     Route: 048

REACTIONS (1)
  - Urticaria [Unknown]
